FAERS Safety Report 8682298 (Version 4)
Quarter: 2012Q4

REPORT INFORMATION
  Report Type: 
  Country: AU (occurrence: AU)
  Receive Date: 20120914
  Receipt Date: 20121109
  Transmission Date: 20130627
  Serious: Yes (Other)
  Sender: FDA-Public Use
  Company Number: AU-B.I. PHARMACEUTICALS,INC./RIDGEFIELD-2012-BP-16401YA

PATIENT
  Age: 74 Year
  Sex: Male

DRUGS (8)
  1. TAMSULOSINA [Suspect]
     Indication: BENIGN PROSTATIC HYPERPLASIA
     Dosage: 0.4 mg
     Route: 048
     Dates: start: 20120712
  2. TAMSULOSINA [Suspect]
     Dosage: 0.2 mg
     Route: 048
  3. ESOMEPRAZOLE (ESOMEPRAZOLE) [Concomitant]
  4. ZOPICLONE (ZOPICLONE) [Concomitant]
  5. VENLAFAXINE [Concomitant]
  6. THYROXINE (LEVOTHYROXINE SODIUM) [Concomitant]
  7. FOLIC ACID (FOLIC ACID) [Concomitant]
  8. CALTRATE (CALCIUM CARBONATE, COLECALCIFEROL) [Concomitant]

REACTIONS (3)
  - Orthostatic hypotension [Recovered/Resolved]
  - Confusional state [Recovered/Resolved]
  - Hospitalisation [Unknown]
